FAERS Safety Report 4944087-6 (Version None)
Quarter: 2006Q1

REPORT INFORMATION
  Report Type: 
  Country: None (occurrence: None)
  Receive Date: 20060310
  Receipt Date: 20060227
  Transmission Date: 20060701
  Serious: Yes (Other)
  Sender: FDA-Public Use
  Company Number: T200600006

PATIENT
  Age: 47 Year
  Sex: Female

DRUGS (1)
  1. OPTIRAY (IOVERSOL) SOLUTION, 300 [Suspect]
     Indication: COMPUTERISED TOMOGRAM
     Dosage: 100 ML, SINGLE, INTRAVENOUS
     Route: 042
     Dates: start: 20051212, end: 20051212

REACTIONS (4)
  - CHEST DISCOMFORT [None]
  - COUGH [None]
  - HYPERVENTILATION [None]
  - PULMONARY CONGESTION [None]
